FAERS Safety Report 23748930 (Version 1)
Quarter: 2024Q2

REPORT INFORMATION
  Report Type: Spontaneous
  Country: US (occurrence: US)
  Receive Date: 20240416
  Receipt Date: 20240416
  Transmission Date: 20240716
  Serious: No
  Sender: FDA-Public Use
  Company Number: US-VER-202300153

PATIENT
  Sex: Female

DRUGS (2)
  1. TRELSTAR [Suspect]
     Active Substance: TRIPTORELIN PAMOATE
     Indication: Breast cancer metastatic
     Route: 065
     Dates: start: 201810
  2. TRELSTAR [Suspect]
     Active Substance: TRIPTORELIN PAMOATE
     Indication: Breast cancer metastatic
     Dosage: 3.75 MG
     Route: 065
     Dates: start: 202303

REACTIONS (11)
  - Adverse reaction [Unknown]
  - Anaemia [Unknown]
  - Bladder pain [Unknown]
  - Pollakiuria [Unknown]
  - Hot flush [Unknown]
  - Dysuria [Unknown]
  - Off label use [Unknown]
  - Osteopenia [Unknown]
  - Abdominal pain upper [Unknown]
  - Peripheral swelling [Unknown]
  - Pyrexia [Unknown]
